FAERS Safety Report 8280783-3 (Version None)
Quarter: 2012Q2

REPORT INFORMATION
  Report Type: 
  Country: None (occurrence: None)
  Receive Date: 20120412
  Receipt Date: 20120405
  Transmission Date: 20120825
  Serious: Yes (Disabling)
  Sender: FDA-Public Use
  Company Number: US-ABBOTT-12P-163-0915763-00

PATIENT
  Sex: Male
  Weight: 94.432 kg

DRUGS (10)
  1. METFORMIN HCL [Concomitant]
     Indication: METABOLIC SYNDROME
  2. SIMVASTATIN [Concomitant]
     Indication: BLOOD CHOLESTEROL INCREASED
  3. METOPROLOL TARTRATE [Concomitant]
     Indication: HYPERTENSION
  4. LOSARTAN POTASSIUM [Concomitant]
     Indication: HYPERTENSION
  5. ANDROGEL [Suspect]
     Indication: PRODUCT USED FOR UNKNOWN INDICATION
  6. LEVOTHYROXINE SODIUM [Concomitant]
     Indication: THYROID DISORDER
  7. TESTIM [Suspect]
     Indication: HYPOGONADISM
     Dosage: 1 TUBE DAILY
     Route: 061
     Dates: start: 20111201
  8. TESTIM [Suspect]
     Indication: BONE LOSS
  9. TESTIM [Suspect]
     Indication: ERECTILE DYSFUNCTION
  10. VITAMIN D [Concomitant]
     Indication: VITAMIN D DEFICIENCY

REACTIONS (7)
  - ERECTILE DYSFUNCTION [None]
  - DRUG INEFFECTIVE [None]
  - OEDEMA [None]
  - OEDEMA PERIPHERAL [None]
  - RASH PRURITIC [None]
  - RASH MACULAR [None]
  - GAIT DISTURBANCE [None]
